FAERS Safety Report 25046635 (Version 1)
Quarter: 2025Q1

REPORT INFORMATION
  Report Type: Spontaneous
  Country: CN (occurrence: CN)
  Receive Date: 20250306
  Receipt Date: 20250306
  Transmission Date: 20250408
  Serious: Yes (Hospitalization)
  Sender: BAYER HEALTHCARE PHARMACEUTICALS INC.
  Company Number: CN-BAYER-2025A031358

PATIENT
  Age: 58 Year
  Sex: Female
  Weight: 63 kg

DRUGS (1)
  1. ULTRAVIST [Suspect]
     Active Substance: IOPROMIDE
     Indication: Angiocardiogram
     Route: 041
     Dates: start: 20250217, end: 20250217

REACTIONS (10)
  - Anaphylactic shock [Recovering/Resolving]
  - Head discomfort [None]
  - Gait disturbance [None]
  - Face oedema [Recovering/Resolving]
  - Erythema [None]
  - Blood pressure immeasurable [Recovering/Resolving]
  - Oxygen saturation decreased [Recovered/Resolved]
  - Depressed mood [None]
  - Heart rate increased [Recovered/Resolved]
  - Nausea [None]

NARRATIVE: CASE EVENT DATE: 20250217
